FAERS Safety Report 26161009 (Version 1)
Quarter: 2025Q4

REPORT INFORMATION
  Report Type: Spontaneous
  Country: US (occurrence: US)
  Receive Date: 20251216
  Receipt Date: 20251216
  Transmission Date: 20260117
  Serious: Yes (Other)
  Sender: ATHENA
  Company Number: US-SABAL THERAPEUTICS LLC-2025-ATH-000062

PATIENT

DRUGS (2)
  1. OZOBAX [Suspect]
     Active Substance: BACLOFEN
     Indication: Product used for unknown indication
     Dosage: UNK
     Route: 065
  2. OZOBAX [Suspect]
     Active Substance: BACLOFEN
     Dosage: 10 MG, TID
     Route: 065

REACTIONS (2)
  - Substance use disorder [Unknown]
  - Off label use [Unknown]
